FAERS Safety Report 7001834-X (Version None)
Quarter: 2010Q3

REPORT INFORMATION
  Report Type: 
  Country: None (occurrence: None)
  Receive Date: 20100920
  Receipt Date: 20070702
  Transmission Date: 20110219
  Serious: Yes (Other)
  Sender: FDA-Public Use
  Company Number: US-ASTRAZENECA-2006UW23785

PATIENT
  Age: 30 Year
  Sex: Female
  Weight: 136.4 kg

DRUGS (4)
  1. SEROQUEL [Suspect]
     Indication: SLEEP DISORDER
     Dosage: 100 MG, 25-100 MG
     Route: 048
     Dates: start: 20050224
  2. EFFEXOR XR [Concomitant]
     Dosage: 75, BID
     Dates: start: 20050808
  3. LAMISIL [Concomitant]
     Dates: start: 20050808
  4. AMBIEN [Concomitant]
     Dates: start: 20050927

REACTIONS (1)
  - PANCREATITIS [None]
